FAERS Safety Report 14654114 (Version 22)
Quarter: 2023Q4

REPORT INFORMATION
  Report Type: Report from Study
  Country: CA (occurrence: CA)
  Receive Date: 20180319
  Receipt Date: 20231128
  Transmission Date: 20240109
  Serious: Yes (Other)
  Sender: FDA-Public Use
  Company Number: PHHY2018CA046231

PATIENT
  Sex: Male

DRUGS (13)
  1. COSENTYX [Suspect]
     Active Substance: SECUKINUMAB
     Indication: Psoriatic arthropathy
     Dosage: 300 MG, QMO
     Route: 058
     Dates: start: 20170619
  2. COSENTYX [Suspect]
     Active Substance: SECUKINUMAB
     Indication: Psoriasis
     Dosage: 300 MG, QMO
     Route: 058
     Dates: start: 201802
  3. COSENTYX [Suspect]
     Active Substance: SECUKINUMAB
     Dosage: 150 MG, Q2W
     Route: 058
  4. COSENTYX [Suspect]
     Active Substance: SECUKINUMAB
     Dosage: 450 MG, QMO
     Route: 058
     Dates: start: 201802
  5. COSENTYX [Suspect]
     Active Substance: SECUKINUMAB
     Dosage: 450 MG, QMO
     Route: 058
     Dates: start: 20190804
  6. COSENTYX [Suspect]
     Active Substance: SECUKINUMAB
     Dosage: 300 MG, QMO
     Route: 058
  7. COSENTYX [Suspect]
     Active Substance: SECUKINUMAB
     Dosage: 400 MG, QMO
     Route: 058
  8. COSENTYX [Suspect]
     Active Substance: SECUKINUMAB
     Dosage: 450 MG, QMO
     Route: 058
     Dates: start: 20220811
  9. METHOTREXATE [Concomitant]
     Active Substance: METHOTREXATE
     Indication: Product used for unknown indication
     Dosage: UNK
     Route: 065
  10. METFORMIN [Concomitant]
     Active Substance: METFORMIN HYDROCHLORIDE
     Indication: Product used for unknown indication
     Dosage: UNK
     Route: 065
  11. HUMIRA [Concomitant]
     Active Substance: ADALIMUMAB
     Indication: Product used for unknown indication
     Dosage: UNK
     Route: 065
  12. PREDNISONE [Concomitant]
     Active Substance: PREDNISONE
     Indication: Product used for unknown indication
     Dosage: UNK
     Route: 065
  13. SULFASALAZINE [Concomitant]
     Active Substance: SULFASALAZINE
     Indication: Product used for unknown indication
     Dosage: UNK, QD
     Route: 065
     Dates: start: 2021

REACTIONS (19)
  - Respiratory tract infection [Unknown]
  - Increased viscosity of upper respiratory secretion [Unknown]
  - Throat tightness [Unknown]
  - Cyst [Unknown]
  - Mobility decreased [Unknown]
  - Pain [Unknown]
  - Musculoskeletal stiffness [Recovering/Resolving]
  - Arthralgia [Unknown]
  - Prostatitis [Unknown]
  - Weight decreased [Recovering/Resolving]
  - Tendonitis [Unknown]
  - Inflammation [Unknown]
  - Weight increased [Unknown]
  - Skin lesion [Unknown]
  - Sunburn [Unknown]
  - COVID-19 [Recovering/Resolving]
  - Psoriasis [Not Recovered/Not Resolved]
  - Off label use [Unknown]
  - Therapeutic response shortened [Unknown]

NARRATIVE: CASE EVENT DATE: 20180101
